FAERS Safety Report 19405478 (Version 1)
Quarter: 2021Q2

REPORT INFORMATION
  Report Type: Report from Study
  Country: CA (occurrence: CA)
  Receive Date: 20210611
  Receipt Date: 20210611
  Transmission Date: 20210717
  Serious: Yes (Other)
  Sender: FDA-Public Use
  Company Number: PHHY2017CA103678

PATIENT
  Age: 45 Year
  Sex: Female

DRUGS (3)
  1. SANDOSTATIN LAR DEPOT [Suspect]
     Active Substance: OCTREOTIDE ACETATE
     Dosage: 30 MG, QMO
     Route: 030
     Dates: start: 20190212
  2. SANDOSTATIN LAR DEPOT [Suspect]
     Active Substance: OCTREOTIDE ACETATE
     Dosage: UNK
     Route: 030
     Dates: start: 20190312
  3. SANDOSTATIN LAR DEPOT [Suspect]
     Active Substance: OCTREOTIDE ACETATE
     Indication: CARCINOID TUMOUR
     Dosage: 30 MG, QMO
     Route: 030
     Dates: start: 20170612

REACTIONS (16)
  - Pain [Unknown]
  - Malaise [Unknown]
  - Fall [Unknown]
  - Nausea [Recovered/Resolved]
  - Metastases to thyroid [Unknown]
  - Contusion [Unknown]
  - Abdominal pain upper [Recovering/Resolving]
  - Eructation [Recovered/Resolved]
  - Stress [Unknown]
  - Fatigue [Unknown]
  - Flatulence [Unknown]
  - Diarrhoea [Recovered/Resolved]
  - Epigastric discomfort [Unknown]
  - Abdominal discomfort [Recovering/Resolving]
  - Feeling of body temperature change [Unknown]
  - Feeling abnormal [Unknown]

NARRATIVE: CASE EVENT DATE: 20170619
